FAERS Safety Report 5392037-3 (Version None)
Quarter: 2007Q3

REPORT INFORMATION
  Report Type: 
  Country: None (occurrence: None)
  Receive Date: 20070718
  Receipt Date: 20070718
  Transmission Date: 20080115
  Serious: Yes (Hospitalization)
  Sender: FDA-Public Use
  Company Number: None

PATIENT
  Sex: Female
  Weight: 78.9 kg

DRUGS (12)
  1. CISPLATIN [Suspect]
     Dosage: 93 MG
  2. CISPLATIN [Suspect]
  3. ACTIQ [Concomitant]
  4. COMPAZINE [Concomitant]
  5. FEMCON FE [Concomitant]
  6. LEXAPRO [Concomitant]
  7. LORTAB [Concomitant]
  8. METHADONE HCL [Concomitant]
  9. MIRALAX [Concomitant]
  10. SENNA [Concomitant]
  11. XANAX [Concomitant]
  12. ZOFRAN [Concomitant]

REACTIONS (8)
  - CERVIX CANCER METASTATIC [None]
  - HAEMATURIA [None]
  - HYDRONEPHROSIS [None]
  - HYPERTENSION [None]
  - METASTASES TO BLADDER [None]
  - PLEURAL EFFUSION [None]
  - RENAL FAILURE [None]
  - THROMBOSIS [None]
